FAERS Safety Report 6695037-6 (Version None)
Quarter: 2010Q2

REPORT INFORMATION
  Report Type: 
  Country: None (occurrence: None)
  Receive Date: 20100423
  Receipt Date: 20100413
  Transmission Date: 20101027
  Serious: Yes (Other)
  Sender: FDA-Public Use
  Company Number: PHEH2009US02808

PATIENT
  Sex: Female

DRUGS (17)
  1. ELIDEL [Suspect]
     Indication: ALOPECIA
     Dosage: UNK
     Route: 061
     Dates: start: 20020301
  2. COMPAZINE [Concomitant]
  3. COUMADIN [Concomitant]
  4. ANZEMET [Concomitant]
  5. PAXIL [Concomitant]
  6. NEXIUM [Concomitant]
  7. AMOXICILLIN [Concomitant]
  8. LEVAQUIN [Concomitant]
  9. ZITHROMAX [Concomitant]
  10. AUGMENTIN '125' [Concomitant]
  11. PAROXETINE HCL [Concomitant]
  12. OXYCODONE HCL AND ACETAMINOPHEN [Concomitant]
  13. FAMOTIDINE [Concomitant]
  14. HYDROCODONE BITARTRATE [Concomitant]
  15. CELEXA [Concomitant]
  16. SYNTHROID [Concomitant]
     Dosage: 100 UG, QD
  17. RADIATION THERAPY [Concomitant]

REACTIONS (17)
  - ANXIETY [None]
  - BACK PAIN [None]
  - DEPRESSION [None]
  - FATIGUE [None]
  - HODGKIN'S DISEASE [None]
  - HOT FLUSH [None]
  - HYPERHIDROSIS [None]
  - HYPOTHYROIDISM [None]
  - INJURY [None]
  - JUGULAR VEIN THROMBOSIS [None]
  - LYMPHADENECTOMY [None]
  - MENSTRUATION IRREGULAR [None]
  - MUCOSAL INFLAMMATION [None]
  - NEUTROPENIA [None]
  - RENAL CYST [None]
  - SMEAR CERVIX ABNORMAL [None]
  - TEMPERATURE INTOLERANCE [None]
